FAERS Safety Report 20083382 (Version 2)
Quarter: 2024Q2

REPORT INFORMATION
  Report Type: Report from Study
  Country: US (occurrence: US)
  Receive Date: 20211117
  Receipt Date: 20240627
  Transmission Date: 20240716
  Serious: Yes (Death, Other)
  Sender: FDA-Public Use
  Company Number: US-ACADIA PHARMACEUTICALS INC.-ACA-2021-PIM-003788

PATIENT
  Age: 74 Year
  Sex: Male

DRUGS (25)
  1. NUPLAZID [Suspect]
     Active Substance: PIMAVANSERIN TARTRATE
     Indication: Parkinson^s disease psychosis
     Dosage: 34 MILLIGRAM, QD
     Route: 048
     Dates: start: 20210513, end: 20240530
  2. NUPLAZID [Suspect]
     Active Substance: PIMAVANSERIN TARTRATE
     Indication: Parkinson^s disease
  3. CARBIDOPA\LEVODOPA [Concomitant]
     Active Substance: CARBIDOPA\LEVODOPA
  4. DROXIDOPA [Concomitant]
     Active Substance: DROXIDOPA
  5. FERROUS SULFATE [Concomitant]
     Active Substance: FERROUS SULFATE
  6. RYTARY [Concomitant]
     Active Substance: CARBIDOPA\LEVODOPA
  7. SERTRALINE [Concomitant]
     Active Substance: SERTRALINE HYDROCHLORIDE
  8. ASPIRIN [Concomitant]
     Active Substance: ASPIRIN
  9. IRON [Concomitant]
     Active Substance: IRON
  10. VITAMIN B AND C COMPLEX [Concomitant]
  11. AMITIZA [Concomitant]
     Active Substance: LUBIPROSTONE
  12. AMLODIPINE [Concomitant]
     Active Substance: AMLODIPINE BESYLATE
  13. BENAZEPRIL [Concomitant]
     Active Substance: BENAZEPRIL HYDROCHLORIDE
  14. FINASTERIDE [Concomitant]
     Active Substance: FINASTERIDE
  15. HYDROCHLOROTHIAZIDE [Concomitant]
     Active Substance: HYDROCHLOROTHIAZIDE
  16. LORATADINE [Concomitant]
     Active Substance: LORATADINE
  17. MYRBETRIQ [Concomitant]
     Active Substance: MIRABEGRON
  18. SIMVASTATIN [Concomitant]
     Active Substance: SIMVASTATIN
  19. CLONIDINE [Concomitant]
     Active Substance: CLONIDINE
  20. FLUDROCORTISONE [Concomitant]
     Active Substance: FLUDROCORTISONE
  21. METFORMIN [Concomitant]
     Active Substance: METFORMIN HYDROCHLORIDE
  22. PREDNISONE [Concomitant]
     Active Substance: PREDNISONE
  23. QUETIAPINE [Concomitant]
     Active Substance: QUETIAPINE
  24. RIVASTIGMINE [Concomitant]
     Active Substance: RIVASTIGMINE
  25. ROSUVASTATIN [Concomitant]
     Active Substance: ROSUVASTATIN

REACTIONS (2)
  - Death [Fatal]
  - Oedema peripheral [Not Recovered/Not Resolved]

NARRATIVE: CASE EVENT DATE: 20210911
